FAERS Safety Report 8460214-0 (Version None)
Quarter: 2012Q2

REPORT INFORMATION
  Report Type: 
  Country: None (occurrence: None)
  Receive Date: 20120323
  Receipt Date: 20110914
  Transmission Date: 20120825
  Serious: Yes (Other)
  Sender: FDA-Public Use
  Company Number: 163-21880-11091763

PATIENT
  Age: 54 Year
  Sex: Male
  Weight: 95.709 kg

DRUGS (2)
  1. REVLIMID [Suspect]
     Indication: MULTIPLE MYELOMA
     Dosage: 10 MG, QD ON DAYS 1-21 OR 28, PO; 5 MG, QD ON DAYS 1-21 OF 28, PO
     Route: 048
     Dates: start: 20101001
  2. REVLIMID [Suspect]
     Indication: MULTIPLE MYELOMA
     Dosage: 10 MG, QD ON DAYS 1-21 OR 28, PO; 5 MG, QD ON DAYS 1-21 OF 28, PO
     Route: 048
     Dates: start: 20110901

REACTIONS (1)
  - PLATELET COUNT DECREASED [None]
